FAERS Safety Report 7152753-X (Version None)
Quarter: 2010Q4

REPORT INFORMATION
  Report Type: 
  Country: None (occurrence: None)
  Receive Date: 20101123
  Receipt Date: 20101021
  Transmission Date: 20110411
  Serious: No
  Sender: FDA-Public Use
  Company Number: 020810

PATIENT
  Sex: Male
  Weight: 76.2 kg

DRUGS (3)
  1. CIMZIA [Suspect]
     Indication: CROHN'S DISEASE
     Dosage: (TWO SHOTS SUBCUTANEOUS)
     Route: 058
     Dates: start: 20101001
  2. CARAFATE [Concomitant]
  3. PREDNISONE [Concomitant]

REACTIONS (9)
  - DIARRHOEA HAEMORRHAGIC [None]
  - INJECTION SITE EXTRAVASATION [None]
  - INJECTION SITE PAIN [None]
  - LYMPHADENOPATHY [None]
  - NASAL CONGESTION [None]
  - NASOPHARYNGITIS [None]
  - OROPHARYNGEAL PAIN [None]
  - PAIN [None]
  - RHINORRHOEA [None]
